FAERS Safety Report 11326372 (Version 1)
Quarter: 2015Q3

REPORT INFORMATION
  Report Type: Spontaneous
  Country: JP (occurrence: None)
  Receive Date: 20150729
  Receipt Date: 20150729
  Transmission Date: 20151125
  Serious: Yes (Other)
  Sender: FDA-Public Use
  Company Number: 2014FE03176

PATIENT
  Age: 43 Year
  Sex: Female

DRUGS (3)
  1. DDAVP [Suspect]
     Active Substance: DESMOPRESSIN ACETATE
     Indication: DIABETES INSIPIDUS
  2. LEVOTHYROXINE. [Concomitant]
     Active Substance: LEVOTHYROXINE
  3. PREDNISOLONE (PREDNISOLONE) [Suspect]
     Active Substance: PREDNISOLONE
     Indication: LYMPHOCYTIC HYPOPHYSITIS

REACTIONS (4)
  - Exposure during pregnancy [None]
  - Suppressed lactation [None]
  - Foetal distress syndrome [None]
  - Premature rupture of membranes [None]
